FAERS Safety Report 7306180-2 (Version None)
Quarter: 2011Q1

REPORT INFORMATION
  Report Type: 
  Country: None (occurrence: None)
  Receive Date: 20110222
  Receipt Date: 20110209
  Transmission Date: 20110831
  Serious: Yes (Death, Other)
  Sender: FDA-Public Use
  Company Number: IT-CELGENEUS-083-20785-11021445

PATIENT

DRUGS (4)
  1. WARFARIN [Concomitant]
     Route: 065
  2. THALIDOMIDE [Suspect]
     Indication: MULTIPLE MYELOMA
     Route: 048
  3. ASA [Concomitant]
     Route: 065
  4. LMWH [Concomitant]
     Route: 065

REACTIONS (12)
  - EPISTAXIS [None]
  - HAEMORRHAGE URINARY TRACT [None]
  - CEREBROVASCULAR ACCIDENT [None]
  - CARDIAC ARREST [None]
  - PULMONARY EMBOLISM [None]
  - DEEP VEIN THROMBOSIS [None]
  - ARTERIAL THROMBOSIS [None]
  - MULTIPLE MYELOMA [None]
  - GASTROINTESTINAL HAEMORRHAGE [None]
  - SUDDEN DEATH [None]
  - SKIN HAEMORRHAGE [None]
  - ACUTE MYOCARDIAL INFARCTION [None]
